FAERS Safety Report 21412892 (Version 1)
Quarter: 2022Q4

REPORT INFORMATION
  Report Type: Report from Study
  Country: US (occurrence: US)
  Receive Date: 20221005
  Receipt Date: 20221005
  Transmission Date: 20230113
  Serious: Yes (Hospitalization, Other)
  Sender: FDA-Public Use
  Company Number: US-KARYOPHARM-2022KPT001158

PATIENT
  Age: 42 Year
  Sex: Male
  Weight: 84.2 kg

DRUGS (2)
  1. SELINEXOR [Suspect]
     Active Substance: SELINEXOR
     Indication: Soft tissue sarcoma
     Dosage: 60 MG, WEEKLY FOR 3 WEEKS PER CYCLE
     Route: 048
     Dates: start: 20220830, end: 20220920
  2. ATEZOLIZUMAB [Suspect]
     Active Substance: ATEZOLIZUMAB
     Indication: Soft tissue sarcoma
     Dosage: 1200 MG, ON DAY 8 OF CYCLE 1, AND THEN ON DAY 1 OF SUBSEQUENT 4-WEEK CYCLES
     Route: 042
     Dates: start: 20220906, end: 20220920

REACTIONS (2)
  - Neutrophil count decreased [Recovered/Resolved]
  - Pleural infection [Recovering/Resolving]

NARRATIVE: CASE EVENT DATE: 20220920
